FAERS Safety Report 7762430-X (Version None)
Quarter: 2011Q3

REPORT INFORMATION
  Report Type: 
  Country: None (occurrence: None)
  Receive Date: 20110920
  Receipt Date: 20110914
  Transmission Date: 20111222
  Serious: Yes (Hospitalization, Other)
  Sender: FDA-Public Use
  Company Number: US-ABBOTT-11P-163-0855468-00

PATIENT
  Age: 25 Year
  Sex: Female

DRUGS (2)
  1. NUVARING [Concomitant]
     Indication: CONTRACEPTION
  2. HUMIRA [Suspect]
     Indication: CROHN'S DISEASE
     Dates: start: 20110601

REACTIONS (4)
  - PILONIDAL CYST [None]
  - CROHN'S DISEASE [None]
  - PYREXIA [None]
  - DIARRHOEA [None]
